FAERS Safety Report 6763869-1 (Version None)
Quarter: 2010Q2

REPORT INFORMATION
  Report Type: 
  Country: None (occurrence: None)
  Receive Date: 20100610
  Receipt Date: 20100601
  Transmission Date: 20101027
  Serious: Yes (Hospitalization)
  Sender: FDA-Public Use
  Company Number: US-ASTRAZENECA-2010SE18102

PATIENT
  Age: 72 Year
  Sex: Male
  Weight: 88.9 kg

DRUGS (39)
  1. PULMICORT RESPULES [Suspect]
     Indication: ASTHMA
     Dosage: 1 MG DAILY, BID
     Route: 055
     Dates: start: 20050101
  2. PULMICORT RESPULES [Suspect]
     Indication: CHRONIC OBSTRUCTIVE PULMONARY DISEASE
     Dosage: 1 MG DAILY, BID
     Route: 055
     Dates: start: 20050101
  3. METOPROLOL TARTRATE [Concomitant]
     Route: 048
  4. ISOSORBIDE MONONITRATE [Concomitant]
     Route: 048
  5. KLOR-CON [Concomitant]
     Route: 048
  6. PLAVIX [Concomitant]
     Route: 048
  7. ATENOLOL [Concomitant]
  8. ROPINIROLE [Concomitant]
     Route: 048
  9. CLARITIN [Concomitant]
  10. COZAAR [Concomitant]
     Route: 048
  11. FUROSEMIDE [Concomitant]
     Dosage: 1/2 TABLET DAILY
  12. FOMOTIDINE [Concomitant]
     Route: 048
  13. PRAMIPEXOLE DIHYDROCHLORIDE [Concomitant]
     Route: 048
  14. LEXAPRO [Concomitant]
     Route: 048
  15. LIPITOR [Concomitant]
     Route: 048
  16. THEOPHYLLINE [Concomitant]
  17. OXYGEN [Concomitant]
     Dosage: 2 L CONTINUOUSLY
  18. SPIRIVA [Concomitant]
  19. ALBUTEROL [Concomitant]
     Indication: CHRONIC OBSTRUCTIVE PULMONARY DISEASE
     Dosage: PRN
  20. BROVANA [Concomitant]
     Indication: CHRONIC OBSTRUCTIVE PULMONARY DISEASE
     Dosage: 15 MCG/ 2 ML, ONE VAIL IN NEBULISER BID
     Route: 055
  21. SINGULAIR [Concomitant]
     Route: 048
  22. ASPIRIN [Concomitant]
     Route: 048
  23. ASPIRIN [Concomitant]
     Route: 048
  24. DIFLUCAN [Concomitant]
     Route: 048
  25. LACTOBACILLUS ACIDOPHILUS [Concomitant]
     Route: 048
  26. OMEPRAZOLE [Concomitant]
     Route: 048
  27. PREDNISONE [Concomitant]
     Route: 048
  28. PREDNISONE [Concomitant]
     Route: 048
  29. PREDNISONE [Concomitant]
     Route: 048
  30. PREDNISONE [Concomitant]
     Route: 048
  31. PREDNISONE [Concomitant]
     Route: 048
  32. LEVEMIR [Concomitant]
     Dosage: 100UNITS/1ML, INJECTED 60 UNITS AT NIGHT
     Route: 058
  33. HUMALOG [Concomitant]
     Dosage: 100 UNITS/ 1 ML, 7 UNITS SC AC MEALS.
     Route: 058
  34. IRON [Concomitant]
  35. MULTI-VITAMINS [Concomitant]
     Dosage: DAILY
  36. DUONEB [Concomitant]
     Dosage: 0.5 MCG/3MG PER 3ML, 1 VAIL EVERY 4-6 HOURS AS NEEDED.
  37. XOPENEX [Concomitant]
     Dosage: 45 MCG/ 1 ACTUATION, 1-2 INHALATION 4-6 HOURS PRN
     Route: 048
  38. XOPENEX [Concomitant]
     Dosage: 0.63 MG/3ML, 1 VAIL TID, PRN
  39. XOPENEX [Concomitant]
     Dosage: 0.63 MG/3ML, 1 VAIL BID

REACTIONS (9)
  - BLOOD GLUCOSE DECREASED [None]
  - CHEST PAIN [None]
  - CHRONIC OBSTRUCTIVE PULMONARY DISEASE [None]
  - COLONIC POLYP [None]
  - DIARRHOEA [None]
  - HAEMORRHAGE [None]
  - LOSS OF CONSCIOUSNESS [None]
  - PNEUMONIA [None]
  - WEIGHT DECREASED [None]
